FAERS Safety Report 21664836 (Version 1)
Quarter: 2022Q4

REPORT INFORMATION
  Report Type: Spontaneous
  Country: None (occurrence: US)
  Receive Date: 20221130
  Receipt Date: 20221130
  Transmission Date: 20230113
  Serious: No
  Sender: FDA-Public Use
  Company Number: US-GREER Laboratories, Inc.-2135414

PATIENT
  Age: 10 Year
  Sex: Female
  Weight: 29.545 kg

DRUGS (8)
  1. ALLERGENIC EXTRACT- PEANUT ARACHIS HYPOGAEA [Suspect]
     Active Substance: ALLERGENIC EXTRACT- PEANUT ARACHIS HYPOGAEA
     Indication: Anaphylactic reaction
     Dates: start: 20221010, end: 20221010
  2. CORYLUS AMERICANA POLLEN\HAZELNUT, UNSPECIFIED [Suspect]
     Active Substance: CORYLUS AMERICANA POLLEN\HAZELNUT, UNSPECIFIED
     Dates: start: 20221010, end: 20221010
  3. PECAN FOOD [Suspect]
     Active Substance: PECAN
     Dates: start: 20221010, end: 20221010
  4. ENGLISH WALNUT FOOD [Suspect]
     Active Substance: ENGLISH WALNUT
     Dates: start: 20221010, end: 20221010
  5. ALMOND FOOD [Suspect]
     Active Substance: ALMOND
     Dates: start: 20221010, end: 20221010
  6. CASHEW NUT [Suspect]
     Active Substance: CASHEW
     Dates: start: 20221010, end: 20221010
  7. BRAZIL NUT [Suspect]
     Active Substance: BRAZIL NUT
     Dates: start: 20221010, end: 20221010
  8. ALLEGRA [Concomitant]
     Active Substance: FEXOFENADINE HYDROCHLORIDE

REACTIONS (2)
  - Drug ineffective [None]
  - No adverse event [None]

NARRATIVE: CASE EVENT DATE: 20221010
